FAERS Safety Report 11293228 (Version 2)
Quarter: 2017Q1

REPORT INFORMATION
  Report Type: Spontaneous
  Country: US (occurrence: US)
  Receive Date: 20150722
  Receipt Date: 20170228
  Transmission Date: 20170428
  Serious: Yes (Hospitalization, Other)
  Sender: FDA-Public Use
  Company Number: US-APOTEX-2015AP010617

PATIENT

DRUGS (10)
  1. LIPITOR [Suspect]
     Active Substance: ATORVASTATIN CALCIUM
     Indication: PROPHYLAXIS
     Dosage: 80 MG, QD
     Route: 065
     Dates: end: 201506
  2. ATORVASTATIN CALCIUM. [Suspect]
     Active Substance: ATORVASTATIN CALCIUM
     Indication: PROPHYLAXIS
     Dosage: UNK, UNKNOWN
     Route: 065
  3. DIGOXIN. [Suspect]
     Active Substance: DIGOXIN
     Indication: PROPHYLAXIS
     Dosage: UNK, UNKNOWN
     Route: 065
  4. ENALAPRIL [Suspect]
     Active Substance: ENALAPRIL
     Indication: HEADACHE
  5. ATORVASTATIN CALCIUM. [Suspect]
     Active Substance: ATORVASTATIN CALCIUM
     Indication: HEADACHE
  6. DIGOXIN. [Suspect]
     Active Substance: DIGOXIN
     Indication: HEADACHE
  7. ENALAPRIL [Suspect]
     Active Substance: ENALAPRIL
     Indication: PROPHYLAXIS
     Dosage: UNK UNK, UNKNOWN
     Route: 065
  8. LIPITOR [Suspect]
     Active Substance: ATORVASTATIN CALCIUM
     Indication: HEADACHE
     Dosage: 20 MG, DAILY
  9. SERTRALINE HYDROCHLORIDE. [Suspect]
     Active Substance: SERTRALINE HYDROCHLORIDE
     Indication: PRODUCT USED FOR UNKNOWN INDICATION
     Dosage: UNK, UNKNOWN
     Route: 065
  10. ASPIRIN. [Suspect]
     Active Substance: ASPIRIN
     Indication: PRODUCT USED FOR UNKNOWN INDICATION

REACTIONS (9)
  - Dry eye [Unknown]
  - Muscle spasms [Unknown]
  - Trigger finger [Unknown]
  - Off label use [Unknown]
  - Pain in extremity [Not Recovered/Not Resolved]
  - Dupuytren^s contracture [Unknown]
  - Tremor [Not Recovered/Not Resolved]
  - Muscle injury [Unknown]
  - Confusional state [Not Recovered/Not Resolved]
